FAERS Safety Report 7583291-8 (Version None)
Quarter: 2011Q2

REPORT INFORMATION
  Report Type: 
  Country: None (occurrence: None)
  Receive Date: 20110630
  Receipt Date: 20110620
  Transmission Date: 20111010
  Serious: Yes (Other)
  Sender: FDA-Public Use
  Company Number: US-AMGEN-USASP2011031426

PATIENT
  Age: 83 Year
  Sex: Male

DRUGS (1)
  1. ENBREL [Suspect]
     Indication: RHEUMATOID ARTHRITIS
     Dosage: 50 MG, QWK
     Dates: start: 20110518

REACTIONS (11)
  - ATRIAL FIBRILLATION [None]
  - INJECTION SITE ERYTHEMA [None]
  - FEELING ABNORMAL [None]
  - AMNESIA [None]
  - NERVOUSNESS [None]
  - TREMOR [None]
  - INCREASED TENDENCY TO BRUISE [None]
  - HAEMORRHAGIC DIATHESIS [None]
  - SINUSITIS [None]
  - SKIN HAEMORRHAGE [None]
  - ALOPECIA [None]
